FAERS Safety Report 8916518 (Version 1)
Quarter: 2012Q4

REPORT INFORMATION
  Report Type: 
  Country: JP (occurrence: JP)
  Receive Date: 20121120
  Receipt Date: 20121120
  Transmission Date: 20130627
  Serious: Yes (Hospitalization)
  Sender: FDA-Public Use
  Company Number: JP-ROCHE-301350

PATIENT
  Age: 69 Year
  Sex: Male

DRUGS (8)
  1. ROCEPHIN [Suspect]
     Indication: NASOPHARYNGITIS
     Dosage: ADMINISTERED ON 07 SEP 2001, 08 SEP 2001, 10 SEP 2001, 11 SEP 2001, AND 13 SEP 2001.
     Route: 041
     Dates: start: 20010907, end: 20010913
  2. PRANOPROFEN [Suspect]
     Indication: NASOPHARYNGITIS
     Route: 048
     Dates: start: 20010817, end: 20010823
  3. CEFADROXIL [Suspect]
     Indication: NASOPHARYNGITIS
     Route: 048
     Dates: start: 20010817, end: 20010823
  4. STROCAIN [Suspect]
     Indication: NASOPHARYNGITIS
     Route: 048
     Dates: start: 20010817, end: 20010823
  5. FLOMOX [Suspect]
     Indication: NASOPHARYNGITIS
     Route: 048
  6. FLAVERIC [Concomitant]
     Indication: NASOPHARYNGITIS
     Route: 048
  7. LYSOZYME HCL [Concomitant]
     Indication: NASOPHARYNGITIS
     Dosage: REPORTED AS LULU. WITH ACETAMINOPHEN.
     Route: 048
     Dates: start: 20010815, end: 20010815
  8. DICLOFENAC SODIUM [Concomitant]
     Indication: PYREXIA
     Dosage: REPORTED AS VONAFEC.
     Route: 065
     Dates: start: 20010823, end: 20010823

REACTIONS (1)
  - Liver injury [Recovering/Resolving]
